FAERS Safety Report 21151608 (Version 1)
Quarter: 2022Q3

REPORT INFORMATION
  Report Type: Report from Study
  Country: MX (occurrence: MX)
  Receive Date: 20220730
  Receipt Date: 20220730
  Transmission Date: 20221027
  Serious: Yes (Other)
  Sender: FDA-Public Use
  Company Number: MX-NOVARTISPH-NVSC2021MX098976

PATIENT
  Age: 72 Year
  Sex: Male
  Weight: 51 kg

DRUGS (2)
  1. TASIGNA [Suspect]
     Active Substance: NILOTINIB
     Indication: Chronic myeloid leukaemia
     Dosage: 600 MG, QD
     Route: 048
     Dates: start: 202003
  2. TASIGNA [Suspect]
     Active Substance: NILOTINIB
     Dosage: 2, Q12H
     Route: 048

REACTIONS (5)
  - Cataract [Unknown]
  - Malaise [Recovering/Resolving]
  - Dry skin [Recovering/Resolving]
  - Bone pain [Recovering/Resolving]
  - Off label use [Unknown]

NARRATIVE: CASE EVENT DATE: 20200301
